FAERS Safety Report 5906990-X (Version None)
Quarter: 2008Q4

REPORT INFORMATION
  Report Type: 
  Country: None (occurrence: None)
  Receive Date: 20081001
  Receipt Date: 20081001
  Transmission Date: 20090506
  Serious: Yes (Other)
  Sender: FDA-Public Use
  Company Number: None

PATIENT
  Age: 53 Year
  Sex: Female
  Weight: 86 kg

DRUGS (5)
  1. PACLITAXEL [Suspect]
     Indication: OVARIAN CANCER
     Dosage: 330 MG ONE TIME IV DRIP
     Route: 041
     Dates: start: 20080710, end: 20080710
  2. RANITIDINE [Concomitant]
  3. DIPHENHYDRAMINE HCL [Concomitant]
  4. DEXAMETHASONE [Concomitant]
  5. ONDANSETRON [Concomitant]

REACTIONS (6)
  - ABDOMINAL PAIN [None]
  - BACK PAIN [None]
  - BLOOD PRESSURE DECREASED [None]
  - DYSPNOEA [None]
  - FEELING HOT [None]
  - TACHYCARDIA [None]
